FAERS Safety Report 21128576 (Version 1)
Quarter: 2022Q3

REPORT INFORMATION
  Report Type: Report from Study
  Country: US (occurrence: US)
  Receive Date: 20220725
  Receipt Date: 20220725
  Transmission Date: 20221027
  Serious: Yes (Death)
  Sender: FDA-Public Use
  Company Number: US-HLS-202200360

PATIENT
  Age: 50 Year
  Sex: Male

DRUGS (1)
  1. CLOZARIL [Suspect]
     Active Substance: CLOZAPINE
     Indication: Product used for unknown indication
     Dosage: CLOZARIL 8 :100MG TABLETS DAILY (3 IN THE MORNING AND 5 IN THE EVENING).
     Route: 065

REACTIONS (2)
  - Death [Fatal]
  - Therapy interrupted [Unknown]
